FAERS Safety Report 4928395-0 (Version None)
Quarter: 2006Q1

REPORT INFORMATION
  Report Type: 
  Country: None (occurrence: None)
  Receive Date: 20060223
  Receipt Date: 20060208
  Transmission Date: 20060701
  Serious: Yes (Hospitalization)
  Sender: FDA-Public Use
  Company Number: 2006000320

PATIENT
  Age: 68 Year
  Sex: Female

DRUGS (1)
  1. TARCEVA [Suspect]
     Indication: GLIOBLASTOMA MULTIFORME
     Dosage: QD, ORAL
     Route: 048
     Dates: start: 20051101

REACTIONS (2)
  - DIARRHOEA [None]
  - THROMBOCYTOPENIA [None]
